FAERS Safety Report 12533763 (Version 1)
Quarter: 2016Q3

REPORT INFORMATION
  Report Type: Spontaneous
  Country: US (occurrence: US)
  Receive Date: 20160706
  Receipt Date: 20160706
  Transmission Date: 20161109
  Serious: No
  Sender: FDA-Public Use
  Company Number: US-PURDUE-USA-2016-0128726

PATIENT
  Age: 49 Year
  Sex: Male

DRUGS (2)
  1. BUTRANS [Suspect]
     Active Substance: BUPRENORPHINE
     Indication: SPINAL PAIN
     Dosage: 20 MCG/HR, WEEKLY
     Route: 062
     Dates: end: 20160606
  2. BUTRANS [Suspect]
     Active Substance: BUPRENORPHINE
     Dosage: 10 MCG, WEEKLY
     Route: 062
     Dates: start: 201601

REACTIONS (7)
  - Device leakage [Recovered/Resolved]
  - Dizziness [Recovered/Resolved]
  - Application site pruritus [Unknown]
  - Drug effect increased [Unknown]
  - Inappropriate schedule of drug administration [Unknown]
  - Inadequate analgesia [Unknown]
  - Application site rash [Recovered/Resolved]

NARRATIVE: CASE EVENT DATE: 201601
